FAERS Safety Report 8542796-3 (Version None)
Quarter: 2012Q3

REPORT INFORMATION
  Report Type: 
  Country: None (occurrence: None)
  Receive Date: 20120727
  Receipt Date: 20120718
  Transmission Date: 20120928
  Serious: No
  Sender: FDA-Public Use
  Company Number: US-BIOGENIDEC-2012BI026910

PATIENT
  Age: 38 Year
  Sex: Male

DRUGS (2)
  1. TYSABRI [Suspect]
     Indication: MULTIPLE SCLEROSIS
     Route: 042
     Dates: start: 20101025
  2. TYSABRI [Suspect]
     Route: 042
     Dates: end: 20120606

REACTIONS (7)
  - MOBILITY DECREASED [None]
  - GAIT DISTURBANCE [None]
  - MALAISE [None]
  - GENERAL PHYSICAL HEALTH DETERIORATION [None]
  - PARAESTHESIA [None]
  - MENTAL IMPAIRMENT [None]
  - IMPAIRED REASONING [None]
